FAERS Safety Report 6011788-0 (Version None)
Quarter: 2008Q4

REPORT INFORMATION
  Report Type: 
  Country: None (occurrence: None)
  Receive Date: 20081218
  Receipt Date: 20080522
  Transmission Date: 20090506
  Serious: No
  Sender: FDA-Public Use
  Company Number: US-ABBOTT-08P-163-0452635-00

PATIENT
  Sex: Female
  Weight: 81.72 kg

DRUGS (5)
  1. MERIDIA [Suspect]
     Indication: WEIGHT DECREASED
     Route: 048
     Dates: start: 20080501
  2. CITALOPRAM HYDROBROMIDE [Concomitant]
     Indication: ANXIETY
     Route: 048
     Dates: end: 20080520
  3. CITALOPRAM HYDROBROMIDE [Concomitant]
     Route: 048
     Dates: start: 20080520
  4. BUPROPION HCL [Concomitant]
     Indication: DEPRESSION
     Route: 048
  5. WARFARIN SODIUM [Concomitant]
     Indication: PERIPHERAL EMBOLISM
     Dates: start: 20070401

REACTIONS (1)
  - DRUG EFFECT DECREASED [None]
